FAERS Safety Report 8592446-5 (Version None)
Quarter: 2012Q3

REPORT INFORMATION
  Report Type: 
  Country: None (occurrence: None)
  Receive Date: 20120814
  Receipt Date: 20120724
  Transmission Date: 20120928
  Serious: No
  Sender: FDA-Public Use
  Company Number: US-009507513-1207USA010241

PATIENT

DRUGS (4)
  1. INSULIN [Concomitant]
  2. JANUVIA [Suspect]
     Indication: DIABETES MELLITUS
     Dosage: 25 MG, QD
     Route: 048
     Dates: start: 20120720
  3. BYSTOLIC [Concomitant]
  4. PLAVIX [Concomitant]

REACTIONS (4)
  - FEELING JITTERY [None]
  - DIZZINESS [None]
  - HEADACHE [None]
  - FATIGUE [None]
